FAERS Safety Report 5056173-3 (Version None)
Quarter: 2006Q2

REPORT INFORMATION
  Report Type: 
  Country: None (occurrence: None)
  Receive Date: 20060616
  Receipt Date: 20050818
  Transmission Date: 20061013
  Serious: Yes (Other)
  Sender: FDA-Public Use
  Company Number: PHEH2005US07860

PATIENT
  Age: 56 Year
  Sex: Female

DRUGS (5)
  1. EXELON [Suspect]
     Indication: DEMENTIA ALZHEIMER'S TYPE
     Dosage: 4.5 MG,ONCE/SINGLE,ORAL
     Route: 048
     Dates: start: 20050712, end: 20050712
  2. NAMENDA [Concomitant]
  3. EFFEXOR XR [Concomitant]
  4. ARICEPT [Concomitant]
  5. LIPITOR [Concomitant]

REACTIONS (9)
  - BODY TEMPERATURE DECREASED [None]
  - COLD SWEAT [None]
  - DIZZINESS [None]
  - LOSS OF CONSCIOUSNESS [None]
  - RETCHING [None]
  - SOMNOLENCE [None]
  - STOMACH DISCOMFORT [None]
  - SYNCOPE [None]
  - VOMITING [None]
